FAERS Safety Report 9216289 (Version 1)
Quarter: 2013Q2

REPORT INFORMATION
  Report Type: Report from Study
  Country: US (occurrence: US)
  Receive Date: 20130408
  Receipt Date: 20130408
  Transmission Date: 20140414
  Serious: No
  Sender: FDA-Public Use
  Company Number: US-VERTEX PHARMACEUTICALS INC.-2013-004510

PATIENT
  Sex: Female
  Weight: 68 kg

DRUGS (5)
  1. VX-950 (TELAPREVIR) [Suspect]
     Indication: HEPATITIS C
     Dosage: 750 MG, TID
     Route: 048
     Dates: start: 201303
  2. PEGASYS [Suspect]
     Indication: HEPATITIS C
     Dosage: 180 MCG/M
     Dates: start: 201303
  3. RIBAVIRIN [Suspect]
     Indication: HEPATITIS C
     Dosage: 200 MG, UNK
     Dates: start: 201303
  4. LISINOPRIL [Concomitant]
     Dosage: 5 MG, UNK
  5. NOVOLOG [Concomitant]
     Dosage: 100/ML

REACTIONS (7)
  - Pyrexia [Unknown]
  - Influenza like illness [Unknown]
  - Pain [Unknown]
  - Rhinorrhoea [Unknown]
  - Injection site erythema [Unknown]
  - Injection site bruising [Unknown]
  - Fatigue [Unknown]
